FAERS Safety Report 9965661 (Version 1)
Quarter: 2014Q1

REPORT INFORMATION
  Report Type: Report from Study
  Country: US (occurrence: US)
  Receive Date: 20140305
  Receipt Date: 20140305
  Transmission Date: 20141002
  Serious: No
  Sender: FDA-Public Use
  Company Number: US-ABBVIE-13P-163-1127156-00

PATIENT
  Age: 20 Year
  Sex: Female

DRUGS (6)
  1. HUMIRA [Suspect]
     Indication: CROHN^S DISEASE
     Dates: start: 20130715, end: 20130715
  2. HUMIRA [Suspect]
     Dates: start: 20130729, end: 20130729
  3. HUMIRA [Suspect]
  4. CONTRACEPTIVES [Concomitant]
     Indication: CONTRACEPTION
     Dosage: DAILY
  5. PREDNISONE [Concomitant]
     Indication: CROHN^S DISEASE
     Dosage: TAPERING DOSE
     Dates: start: 201307
  6. OMEPRAZOLE [Concomitant]
     Indication: DYSPEPSIA
     Dosage: WHILE ON PREDNISONE

REACTIONS (3)
  - Excoriation [Not Recovered/Not Resolved]
  - Contusion [Not Recovered/Not Resolved]
  - Wound [Not Recovered/Not Resolved]
